FAERS Safety Report 4680471-6 (Version None)
Quarter: 2005Q2

REPORT INFORMATION
  Report Type: 
  Country: None (occurrence: None)
  Receive Date: 20050531
  Receipt Date: 20050203
  Transmission Date: 20051028
  Serious: No
  Sender: FDA-Public Use
  Company Number: WAES 0502USA00468

PATIENT
  Age: 58 Year
  Sex: Female

DRUGS (3)
  1. ZETIA [Suspect]
     Indication: BLOOD CHOLESTEROL INCREASED
     Dosage: 10 MG/DAILY/PO
     Route: 048
     Dates: start: 20040901, end: 20041001
  2. COREG [Concomitant]
  3. ZOCOR [Concomitant]

REACTIONS (7)
  - ABDOMINAL PAIN UPPER [None]
  - BACK PAIN [None]
  - CERVICITIS [None]
  - CONSTIPATION [None]
  - HEADACHE [None]
  - OVARIAN CYST [None]
  - UTERINE SPASM [None]
